FAERS Safety Report 5745039-9 (Version None)
Quarter: 2008Q2

REPORT INFORMATION
  Report Type: 
  Country: None (occurrence: None)
  Receive Date: 20080521
  Receipt Date: 20080507
  Transmission Date: 20081010
  Serious: Yes (Life-Threatening, Hospitalization)
  Sender: FDA-Public Use
  Company Number: FR-BAYER-200818472GPV

PATIENT
  Age: 70 Year
  Sex: Male

DRUGS (8)
  1. GLUCOR [Suspect]
     Indication: TYPE 2 DIABETES MELLITUS
     Dosage: TOTAL DAILY DOSE: 100 MG
     Route: 048
  2. AMAREL [Interacting]
     Indication: DRUG USE FOR UNKNOWN INDICATION
     Dosage: TOTAL DAILY DOSE: 4 MG
     Route: 048
  3. METFORMIN HCL [Interacting]
     Indication: DRUG USE FOR UNKNOWN INDICATION
     Dosage: TOTAL DAILY DOSE: 850 MG
     Route: 048
  4. TANAKAN [Concomitant]
     Indication: DRUG USE FOR UNKNOWN INDICATION
     Route: 048
  5. PIASCLEDINE [Concomitant]
     Indication: DRUG USE FOR UNKNOWN INDICATION
  6. GABAPENTIN [Concomitant]
     Indication: DRUG USE FOR UNKNOWN INDICATION
     Route: 048
  7. G30% [Concomitant]
     Indication: HYPOGLYCAEMIA
     Route: 042
     Dates: start: 20080412
  8. G10% [Concomitant]
     Indication: HYPOGLYCAEMIA
     Route: 042
     Dates: start: 20080412

REACTIONS (1)
  - HYPOGLYCAEMIC COMA [None]
